FAERS Safety Report 15328834 (Version 8)
Quarter: 2019Q1

REPORT INFORMATION
  Report Type: Report from Study
  Country: None (occurrence: US)
  Receive Date: 20180829
  Receipt Date: 20190225
  Transmission Date: 20190417
  Serious: Yes (Hospitalization, Other)
  Sender: FDA-Public Use
  Company Number: US-ABBVIE-18K-163-2466159-00

PATIENT
  Age: 66 Year
  Sex: Female
  Weight: 61.29 kg

DRUGS (8)
  1. HUMIRA [Suspect]
     Active Substance: ADALIMUMAB
     Indication: PSORIATIC ARTHROPATHY
     Route: 058
     Dates: start: 201808
  2. IBUPROFEN. [Concomitant]
     Active Substance: IBUPROFEN
     Indication: PRODUCT USED FOR UNKNOWN INDICATION
  3. LISINOPRIL. [Concomitant]
     Active Substance: LISINOPRIL
     Indication: HYPERTENSION
  4. TYLENOL PM [Concomitant]
     Active Substance: ACETAMINOPHEN\DIPHENHYDRAMINE
     Indication: SLEEP DISORDER
  5. HUMIRA [Suspect]
     Active Substance: ADALIMUMAB
     Indication: PSORIASIS
     Route: 058
     Dates: start: 2003, end: 20180715
  6. SERTRALINE [Concomitant]
     Active Substance: SERTRALINE HYDROCHLORIDE
     Indication: DEPRESSION
  7. BUSPIRONE [Concomitant]
     Active Substance: BUSPIRONE HYDROCHLORIDE
     Indication: ANXIETY
  8. AMLODIPINE [Concomitant]
     Active Substance: AMLODIPINE BESYLATE
     Indication: HYPERTENSION

REACTIONS (19)
  - Hepatic enzyme abnormal [Recovered/Resolved]
  - Ligament sprain [Recovered/Resolved]
  - Gait disturbance [Unknown]
  - Blood potassium increased [Unknown]
  - Nasopharyngitis [Unknown]
  - Infusion site swelling [Recovering/Resolving]
  - Blood potassium abnormal [Recovered/Resolved]
  - Weight decreased [Unknown]
  - Foot fracture [Recovered/Resolved]
  - Gastric haemorrhage [Recovered/Resolved]
  - Dehydration [Recovered/Resolved]
  - Device breakage [Unknown]
  - Gait inability [Recovered/Resolved]
  - Intestinal sepsis [Recovering/Resolving]
  - Fall [Recovered/Resolved]
  - Cystitis [Unknown]
  - Arthritis [Unknown]
  - Intestinal sepsis [Recovered/Resolved]
  - Psoriasis [Not Recovered/Not Resolved]

NARRATIVE: CASE EVENT DATE: 201712
